FAERS Safety Report 7888102-9 (Version None)
Quarter: 2011Q4

REPORT INFORMATION
  Report Type: 
  Country: None (occurrence: None)
  Receive Date: 20111103
  Receipt Date: 20111022
  Transmission Date: 20120403
  Serious: Yes (Other)
  Sender: FDA-Public Use
  Company Number: AE-BRISTOL-MYERS SQUIBB COMPANY-16203341

PATIENT
  Age: 60 Year
  Sex: Female

DRUGS (4)
  1. GLUCOPHAGE [Suspect]
     Indication: DIABETES MELLITUS
     Dosage: 1 DOSAGE FORM = 1 TABLET
     Dates: start: 20110101, end: 20110905
  2. CELEBREX [Concomitant]
     Dosage: 1 D.F:1TAB
     Route: 048
     Dates: start: 20080101
  3. GLUCOSAMINE [Concomitant]
     Dosage: 1 D.F:1TAB
     Route: 048
     Dates: start: 20080101
  4. IBRUPROFEN [Concomitant]
     Dosage: 1 D.F:1TAB
     Route: 048
     Dates: start: 20090101

REACTIONS (1)
  - HAEMOLYTIC ANAEMIA [None]
